FAERS Safety Report 7057574-4 (Version None)
Quarter: 2010Q4

REPORT INFORMATION
  Report Type: 
  Country: None (occurrence: None)
  Receive Date: 20101022
  Receipt Date: 20101014
  Transmission Date: 20110411
  Serious: Yes (Other)
  Sender: FDA-Public Use
  Company Number: DE-ROCHE-732243

PATIENT
  Sex: Female
  Weight: 71.1 kg

DRUGS (7)
  1. HERCEPTIN [Suspect]
     Route: 042
     Dates: start: 20090401
  2. HERCEPTIN [Suspect]
     Route: 042
     Dates: start: 20100816
  3. BONDRONAT [Concomitant]
     Route: 048
  4. XELODA [Concomitant]
     Route: 048
     Dates: start: 20090401
  5. XELODA [Concomitant]
     Route: 048
     Dates: start: 20100817
  6. AREDIA [Concomitant]
     Dates: start: 20090401
  7. TYVERB [Concomitant]
     Dates: start: 20090425

REACTIONS (3)
  - CHILLS [None]
  - DISEASE PROGRESSION [None]
  - PULMONARY EMBOLISM [None]
